FAERS Safety Report 12083406 (Version 1)
Quarter: 2016Q1

REPORT INFORMATION
  Report Type: Spontaneous
  Country: None (occurrence: None)
  Receive Date: 20160216
  Receipt Date: 20160216
  Transmission Date: 20160526
  Serious: Yes (Disabling)
  Sender: FDA-Public Use
  Company Number: None

PATIENT
  Age: 18 Year
  Sex: Female
  Weight: 65.77 kg

DRUGS (2)
  1. PROZAC [Concomitant]
     Active Substance: FLUOXETINE HYDROCHLORIDE
  2. METOCLOPRAMIDE. [Suspect]
     Active Substance: METOCLOPRAMIDE
     Indication: NAUSEA
     Dosage: 1 TABLET FOUR TIMES DAILY TAKEN BY MOUTH
     Route: 048
     Dates: start: 20160111, end: 20160112

REACTIONS (8)
  - Tremor [None]
  - Dyspnoea [None]
  - Memory impairment [None]
  - Gait disturbance [None]
  - Swollen tongue [None]
  - Pharyngeal oedema [None]
  - Feeling hot [None]
  - Palpitations [None]

NARRATIVE: CASE EVENT DATE: 20160112
